FAERS Safety Report 9856656 (Version 1)
Quarter: 2014Q1

REPORT INFORMATION
  Report Type: Spontaneous
  Country: IT (occurrence: IT)
  Receive Date: 20140130
  Receipt Date: 20140130
  Transmission Date: 20141002
  Serious: Yes (Other)
  Sender: FDA-Public Use
  Company Number: IT-TEVA-457728ISR

PATIENT
  Age: 56 Year
  Sex: Female

DRUGS (2)
  1. CARBOPLATINO TEVA [Suspect]
     Indication: ENDOMETRIAL ADENOCARCINOMA
     Dosage: 738 MILLIGRAM DAILY;
     Route: 042
     Dates: start: 20140115, end: 20140115
  2. PACLITAXEL SANDOZ [Concomitant]
     Indication: ENDOMETRIAL ADENOCARCINOMA
     Dosage: 175 MILLIGRAM DAILY;
     Route: 042
     Dates: start: 20140115, end: 20140115

REACTIONS (4)
  - Obstructive airways disorder [Recovered/Resolved]
  - Rash [Recovered/Resolved]
  - Urticaria [Recovered/Resolved]
  - Feeling hot [Recovered/Resolved]
